FAERS Safety Report 6571187-X (Version None)
Quarter: 2010Q1

REPORT INFORMATION
  Report Type: 
  Country: None (occurrence: None)
  Receive Date: 20100204
  Receipt Date: 20100202
  Transmission Date: 20100710
  Serious: Yes (Other)
  Sender: FDA-Public Use
  Company Number: US-MERCK-0910USA02102

PATIENT
  Age: 61 Year
  Sex: Female
  Weight: 97 kg

DRUGS (6)
  1. FOSAMAX [Suspect]
     Indication: OSTEOPOROSIS
     Route: 048
     Dates: start: 20040101
  2. FOSAMAX [Suspect]
     Route: 048
     Dates: start: 20050214
  3. METFORMIN [Concomitant]
     Indication: DIABETES MELLITUS
     Route: 065
  4. BONIVA [Suspect]
     Indication: OSTEOPOROSIS
     Route: 065
  5. BONIVA [Suspect]
     Route: 048
  6. AVANDAMET [Concomitant]
     Indication: DIABETES MELLITUS
     Route: 065

REACTIONS (24)
  - ABDOMINAL PAIN UPPER [None]
  - ARTHRITIS [None]
  - BONE DENSITY DECREASED [None]
  - BREATH ODOUR [None]
  - DEAFNESS [None]
  - DENTAL CARIES [None]
  - DEPRESSION [None]
  - DIZZINESS [None]
  - EXOSTOSIS [None]
  - GINGIVAL BLEEDING [None]
  - IMPAIRED HEALING [None]
  - INFECTION [None]
  - INTERVERTEBRAL DISC DEGENERATION [None]
  - MITRAL VALVE PROLAPSE [None]
  - MYOCARDIAL INFARCTION [None]
  - OSTEONECROSIS [None]
  - PAIN IN JAW [None]
  - PALPITATIONS [None]
  - PNEUMONIA [None]
  - STOMATITIS [None]
  - SYNCOPE [None]
  - TOOTH FRACTURE [None]
  - TOOTHACHE [None]
  - VERTIGO [None]
